FAERS Safety Report 24383036 (Version 2)
Quarter: 2024Q4

REPORT INFORMATION
  Report Type: Spontaneous
  Country: US (occurrence: US)
  Receive Date: 20241001
  Receipt Date: 20241004
  Transmission Date: 20250115
  Serious: Yes (Life-Threatening, Other)
  Sender: PFIZER
  Company Number: US-PFIZER INC-PV202400125994

PATIENT
  Age: 57 Year
  Sex: Female

DRUGS (3)
  1. METOPROLOL TARTRATE [Suspect]
     Active Substance: METOPROLOL TARTRATE
     Indication: Hypertension
     Dosage: UNK
  2. VERAPAMIL HCL [Suspect]
     Active Substance: VERAPAMIL HYDROCHLORIDE
     Indication: Hypertension
     Dosage: UNK
  3. LISINOPRIL [Suspect]
     Active Substance: LISINOPRIL
     Indication: Hypertension
     Dosage: UNK

REACTIONS (1)
  - BRASH syndrome [Recovering/Resolving]
